FAERS Safety Report 5121966-0 (Version None)
Quarter: 2006Q4

REPORT INFORMATION
  Report Type: 
  Country: None (occurrence: None)
  Receive Date: 20061003
  Receipt Date: 20060920
  Transmission Date: 20070319
  Serious: Yes (Hospitalization)
  Sender: FDA-Public Use
  Company Number: 2004101159

PATIENT
  Age: 66 Year
  Sex: Female
  Weight: 61 kg

DRUGS (8)
  1. IRINOTECAN HCL [Suspect]
     Indication: NON-SMALL CELL LUNG CANCER
     Dosage: 90 MG (D1, D8, D15, D22 EVERY SIX WEEKS), INTRAVENOUS
     Route: 042
     Dates: start: 20041108, end: 20041122
  2. DOCETAXEL  (DOCETAXEL) [Suspect]
     Indication: NON-SMALL CELL LUNG CANCER
     Dosage: 50 MG (D1, D8, D15, D22 EVERY SIX WEEKS), IV
     Route: 042
     Dates: start: 20041108, end: 20041122
  3. ALLOPURINOL [Concomitant]
  4. CALCIUM-D                         (CALCIUM CARBONATE, COLECALCIFEROL) [Concomitant]
  5. OMEPRAZEN                 (OMEPRAZOLE) [Concomitant]
  6. DELTACORTENE           (PREDNISONE) [Concomitant]
  7. TRANEX          (TRANEXAMIC ACID) [Concomitant]
  8. AMINOMAL ELISIR           (THEOPHYLLINE) [Concomitant]

REACTIONS (11)
  - ASTHENIA [None]
  - CONFUSIONAL STATE [None]
  - DYSPNOEA [None]
  - METASTASES TO BONE [None]
  - METASTASES TO LIVER [None]
  - NEUROPATHY [None]
  - NEUROTOXICITY [None]
  - NEUTROPHIL PERCENTAGE INCREASED [None]
  - PERICARDIAL EFFUSION [None]
  - PLEURAL EFFUSION [None]
  - PLEURISY [None]
